FAERS Safety Report 17470045 (Version 1)
Quarter: 2020Q1

REPORT INFORMATION
  Report Type: Spontaneous
  Country: US (occurrence: US)
  Receive Date: 20200227
  Receipt Date: 20200227
  Transmission Date: 20200409
  Serious: Yes (Other)
  Sender: FDA-Public Use
  Company Number: US-ALKERMES INC.-ALK-2020-000873

PATIENT
  Age: 31 Year
  Sex: Male

DRUGS (1)
  1. VIVITROL [Suspect]
     Active Substance: NALTREXONE
     Indication: DRUG DEPENDENCE
     Dosage: 380 MG, QMO
     Route: 030
     Dates: start: 20200120

REACTIONS (5)
  - Depressed mood [Recovered/Resolved]
  - Tooth abscess [Unknown]
  - Mental disorder [Recovered/Resolved]
  - Malaise [Recovered/Resolved]
  - Dental necrosis [Unknown]

NARRATIVE: CASE EVENT DATE: 2020
